FAERS Safety Report 4721902-2 (Version None)
Quarter: 2005Q3

REPORT INFORMATION
  Report Type: 
  Country: None (occurrence: None)
  Receive Date: 20050721
  Receipt Date: 20050211
  Transmission Date: 20060218
  Serious: Yes (Other)
  Sender: FDA-Public Use
  Company Number: US-BRISTOL-MYERS SQUIBB COMPANY-12859005

PATIENT
  Age: 48 Year
  Sex: Female
  Weight: 70 kg

DRUGS (3)
  1. COUMADIN [Suspect]
     Indication: ATRIAL SEPTAL DEFECT
     Dosage: ON VARYING DOSES; RECENT DOSE 7.5MG ALTERNATE 5MG QD; 2/10/05: 10MG X 2 DAYS + 5MG UNTIL MONDAY.
     Route: 048
     Dates: start: 20040901, end: 20050216
  2. DURAGESIC-100 [Concomitant]
  3. THYROID TAB [Concomitant]

REACTIONS (4)
  - CYANOSIS [None]
  - INTERNATIONAL NORMALISED RATIO FLUCTUATION [None]
  - OEDEMA PERIPHERAL [None]
  - PRURITUS [None]
